FAERS Safety Report 22674024 (Version 2)
Quarter: 2025Q2

REPORT INFORMATION
  Report Type: Spontaneous
  Country: AU (occurrence: AU)
  Receive Date: 20230705
  Receipt Date: 20250624
  Transmission Date: 20250716
  Serious: Yes (Other)
  Sender: ORGANON
  Company Number: AU-ORGANON-O2306AUS003440

PATIENT
  Age: 55 Year
  Sex: Male

DRUGS (2)
  1. EZETIMIBE [Suspect]
     Active Substance: EZETIMIBE
  2. REPATHA [Suspect]
     Active Substance: EVOLOCUMAB

REACTIONS (1)
  - Barrett^s oesophagus [Unknown]
